FAERS Safety Report 6931122-9 (Version None)
Quarter: 2010Q3

REPORT INFORMATION
  Report Type: 
  Country: None (occurrence: None)
  Receive Date: 20100818
  Receipt Date: 20100812
  Transmission Date: 20110219
  Serious: Yes (Life-Threatening, Hospitalization, Disabling, Other)
  Sender: FDA-Public Use
  Company Number: FR-ELI_LILLY_AND_COMPANY-FR201008003266

PATIENT
  Sex: Male

DRUGS (7)
  1. GEMZAR [Suspect]
     Indication: BILE DUCT CANCER
     Dosage: UNK, UNKNOWN
     Route: 065
  2. GEMZAR [Suspect]
     Dosage: 1923 MG, OTHER (ONE ADMINISTRATION)
     Route: 042
     Dates: start: 20100802, end: 20100802
  3. ELOXATIN [Concomitant]
     Indication: BILE DUCT CANCER
     Dosage: 145 MG, OTHER (ONE ADMINISTRATION)
     Route: 042
     Dates: start: 20100802, end: 20100802
  4. ZOPHREN [Concomitant]
     Dosage: 8 MG, UNK
     Dates: start: 20100802, end: 20100802
  5. SOLU-MEDROL [Concomitant]
     Dosage: 40 MG, UNK
     Dates: start: 20100802, end: 20100802
  6. CALCIUM [Concomitant]
     Indication: PREMEDICATION
     Dosage: 1 G, UNK
     Dates: start: 20100802
  7. MAGNESIUM [Concomitant]
     Indication: PREMEDICATION
     Dosage: 1 G, UNK
     Dates: start: 20100802

REACTIONS (11)
  - BLOOD PRESSURE DECREASED [None]
  - CARDIAC ARREST [None]
  - CONVULSION [None]
  - ERYTHEMA [None]
  - HOT FLUSH [None]
  - LOSS OF CONSCIOUSNESS [None]
  - NAUSEA [None]
  - SYNCOPE [None]
  - TREMOR [None]
  - URINARY INCONTINENCE [None]
  - VOMITING [None]
